FAERS Safety Report 11450291 (Version 3)
Quarter: 2015Q4

REPORT INFORMATION
  Report Type: Spontaneous
  Country: US (occurrence: US)
  Receive Date: 20150903
  Receipt Date: 20151015
  Transmission Date: 20160304
  Serious: No
  Sender: FDA-Public Use
  Company Number: US-009507513-1508USA011817

PATIENT
  Age: 4 Year
  Sex: Male
  Weight: 21 kg

DRUGS (9)
  1. PROVENTIL [Suspect]
     Active Substance: ALBUTEROL
     Indication: ASTHMA
  2. HELIUM (+) OXYGEN [Concomitant]
     Indication: STATUS ASTHMATICUS
  3. IPRATROPIUM BROMIDE. [Concomitant]
     Active Substance: IPRATROPIUM BROMIDE
     Indication: ASTHMA
  4. PROVENTIL [Suspect]
     Active Substance: ALBUTEROL
     Indication: STATUS ASTHMATICUS
     Dosage: UNK, FREQUENCY : INTERMITTENT
     Route: 055
     Dates: start: 20140909, end: 20140915
  5. IPRATROPIUM BROMIDE. [Concomitant]
     Active Substance: IPRATROPIUM BROMIDE
     Indication: STATUS ASTHMATICUS
     Dosage: UNK
     Route: 055
     Dates: start: 20140909, end: 20140909
  6. AMINOPHYLLINE. [Concomitant]
     Active Substance: AMINOPHYLLINE
     Indication: STATUS ASTHMATICUS
     Route: 042
  7. TERBUTALINE SULFATE. [Concomitant]
     Active Substance: TERBUTALINE SULFATE
     Route: 042
  8. METHYLPREDNISOLONE SODIUM SUCCINATE. [Concomitant]
     Active Substance: METHYLPREDNISOLONE SODIUM SUCCINATE
     Indication: ASTHMA
     Dosage: UNK
     Route: 042
     Dates: start: 20140909, end: 20140911
  9. EPINEPHRINE. [Concomitant]
     Active Substance: EPINEPHRINE
     Indication: STATUS ASTHMATICUS
     Route: 030

REACTIONS (1)
  - Accelerated idioventricular rhythm [Recovered/Resolved]

NARRATIVE: CASE EVENT DATE: 20140910
